FAERS Safety Report 22641828 (Version 6)
Quarter: 2023Q4

REPORT INFORMATION
  Report Type: Spontaneous
  Country: US (occurrence: US)
  Receive Date: 20230626
  Receipt Date: 20231101
  Transmission Date: 20240110
  Serious: No
  Sender: FDA-Public Use
  Company Number: US-SA-SAC20230620001488

PATIENT

DRUGS (3)
  1. LARONIDASE [Suspect]
     Active Substance: LARONIDASE
     Indication: Mucopolysaccharidosis I
     Dosage: 26.1 (UNITS NOT PROVIDED), QW
     Route: 042
     Dates: start: 20080310
  2. LARONIDASE [Suspect]
     Active Substance: LARONIDASE
     Dosage: 26.1 MG, QW
     Route: 042
     Dates: start: 202106, end: 202309
  3. LARONIDASE [Suspect]
     Active Substance: LARONIDASE
     Dosage: 26.1 MG, QW
     Route: 042
     Dates: end: 202310

REACTIONS (6)
  - Dehydration [Unknown]
  - Anxiety [Unknown]
  - Dyspnoea [Unknown]
  - Malaise [Unknown]
  - Upper respiratory tract infection [Recovering/Resolving]
  - Exposure during pregnancy [Unknown]

NARRATIVE: CASE EVENT DATE: 20230501
